FAERS Safety Report 20200431 (Version 1)
Quarter: 2021Q4

REPORT INFORMATION
  Report Type: Spontaneous
  Country: MX (occurrence: MX)
  Receive Date: 20211217
  Receipt Date: 20211217
  Transmission Date: 20220304
  Serious: Yes (Hospitalization)
  Sender: FDA-Public Use
  Company Number: MX-ALVOGEN-2021-ALVOGEN-117942

PATIENT
  Age: 80 Year
  Sex: Female
  Weight: 43 kg

DRUGS (4)
  1. ATENOLOL\CHLORTHALIDONE [Suspect]
     Active Substance: ATENOLOL\CHLORTHALIDONE
     Indication: Hypertension
     Route: 048
  2. METFORMIN HYDROCHLORIDE\VILDAGLIPTIN [Concomitant]
     Active Substance: METFORMIN HYDROCHLORIDE\VILDAGLIPTIN
     Dosage: 15 YEARS TAKING 1 ORAL TABLET A DAY EVERY 3 TIMES, 11 YEARS AGO THE DOSE WAS MODIFIED TO 1 ORAL T...
  3. ENALAPRIL MALEATE [Concomitant]
     Active Substance: ENALAPRIL MALEATE
     Dosage: FROM 40 YEARS OF AGE, CONTINUOUS CONSUMPTION AS 1 ORAL TABLET DAILY
  4. DIHYDROARTEMISININ/PIPERAQUINE PHOSPHATE [Concomitant]
     Dosage: 25 YEARS AGO, THE CONSUMPTION CONTINUES AS 2 OPHTHALMIC DROPS IN EACH EYE EVERY NIGHT

REACTIONS (4)
  - Hip fracture [Recovered/Resolved with Sequelae]
  - Upper limb fracture [Recovered/Resolved with Sequelae]
  - Fall [Recovered/Resolved with Sequelae]
  - Memory impairment [Not Recovered/Not Resolved]

NARRATIVE: CASE EVENT DATE: 20181201
